FAERS Safety Report 8601039-2 (Version None)
Quarter: 2012Q3

REPORT INFORMATION
  Report Type: 
  Country: None (occurrence: None)
  Receive Date: 20120817
  Receipt Date: 20120807
  Transmission Date: 20120928
  Serious: Yes (Hospitalization)
  Sender: FDA-Public Use
  Company Number: DE-CELGENEUS-062-21880-11051130

PATIENT
  Age: 64 Year
  Sex: Male
  Weight: 70 kg

DRUGS (7)
  1. REVLIMID [Suspect]
     Dosage: 25 MILLIGRAM
     Route: 048
     Dates: start: 20100803, end: 20100819
  2. DURAGESIC-100 [Concomitant]
     Route: 065
  3. LYRICA [Concomitant]
     Route: 065
  4. ASPIRIN [Concomitant]
     Indication: PROPHYLAXIS
     Route: 065
  5. ZOLEDRONOC ACID [Concomitant]
     Indication: BONE LOSS
     Route: 065
  6. REVLIMID [Suspect]
     Indication: MULTIPLE MYELOMA
     Dosage: 25 MILLIGRAM
     Route: 048
     Dates: start: 20100706
  7. PANTOPRAZOLE [Concomitant]
     Route: 065

REACTIONS (1)
  - B-CELL LYMPHOMA STAGE I [None]
